FAERS Safety Report 21220968 (Version 3)
Quarter: 2022Q4

REPORT INFORMATION
  Report Type: Report from Study
  Country: BR (occurrence: BR)
  Receive Date: 20220817
  Receipt Date: 20221004
  Transmission Date: 20230113
  Serious: Yes (Hospitalization)
  Sender: FDA-Public Use
  Company Number: BR-JNJFOC-20220821944

PATIENT
  Age: 38 Year
  Sex: Male

DRUGS (3)
  1. INVEGA SUSTENNA [Suspect]
     Active Substance: PALIPERIDONE PALMITATE
     Indication: Schizophrenia
     Route: 030
     Dates: start: 20220629
  2. INVEGA SUSTENNA [Suspect]
     Active Substance: PALIPERIDONE PALMITATE
  3. INVEGA SUSTENNA [Suspect]
     Active Substance: PALIPERIDONE PALMITATE

REACTIONS (6)
  - Leukopenia [Unknown]
  - Pneumonia [Recovering/Resolving]
  - Epilepsy [Recovering/Resolving]
  - Hypokalaemia [Unknown]
  - Product dose omission issue [Unknown]
  - Agitation [Unknown]

NARRATIVE: CASE EVENT DATE: 20220801
